FAERS Safety Report 19079127 (Version 1)
Quarter: 2021Q1

REPORT INFORMATION
  Report Type: Spontaneous
  Country: US (occurrence: US)
  Receive Date: 20210331
  Receipt Date: 20210331
  Transmission Date: 20210420
  Serious: Yes (Hospitalization, Other)
  Sender: FDA-Public Use
  Company Number: NVSC2021US067999

PATIENT
  Age: 85 Year
  Sex: Female

DRUGS (10)
  1. ATORVASTATIN [Interacting]
     Active Substance: ATORVASTATIN
     Indication: CARDIOMYOPATHY
  2. TORSEMIDE. [Suspect]
     Active Substance: TORSEMIDE
     Indication: CARDIOMYOPATHY
  3. TORSEMIDE. [Suspect]
     Active Substance: TORSEMIDE
     Indication: AMYLOIDOSIS SENILE
     Dosage: 20 MG, QD
     Route: 065
  4. TAFAMIDIS [Suspect]
     Active Substance: TAFAMIDIS MEGLUMINE
     Indication: AMYLOIDOSIS SENILE
     Dosage: 61 MG, QD
     Route: 065
  5. TAFAMIDIS [Suspect]
     Active Substance: TAFAMIDIS MEGLUMINE
     Indication: CARDIOMYOPATHY
  6. AMIODARONE [Interacting]
     Active Substance: AMIODARONE
     Indication: AMYLOIDOSIS SENILE
     Dosage: 200 MG, QD
     Route: 065
  7. APIXABAN [Suspect]
     Active Substance: APIXABAN
     Indication: AMYLOIDOSIS SENILE
     Dosage: 2.5 MG, BID
     Route: 065
  8. APIXABAN [Suspect]
     Active Substance: APIXABAN
     Indication: CARDIOMYOPATHY
  9. ATORVASTATIN [Suspect]
     Active Substance: ATORVASTATIN
     Indication: AMYLOIDOSIS SENILE
     Dosage: 80 MG, QD
     Route: 065
  10. AMIODARONE [Interacting]
     Active Substance: AMIODARONE
     Indication: CARDIOMYOPATHY

REACTIONS (3)
  - Drug interaction [Unknown]
  - Product use in unapproved indication [Unknown]
  - Rhabdomyolysis [Recovering/Resolving]
